FAERS Safety Report 18791701 (Version 1)
Quarter: 2021Q1

REPORT INFORMATION
  Report Type: Spontaneous
  Country: US (occurrence: US)
  Receive Date: 20210126
  Receipt Date: 20210126
  Transmission Date: 20210419
  Serious: No
  Sender: FDA-Public Use
  Company Number: US-PERRIGO-20US006256

PATIENT
  Age: 48 Year
  Sex: Male
  Weight: 113.38 kg

DRUGS (1)
  1. IBUPROFEN AND DIPHENHYDRAMINE CITRATE [Suspect]
     Active Substance: DIPHENHYDRAMINE CITRATE\IBUPROFEN
     Indication: PRODUCT NAME CONFUSION
     Dosage: 2 TABLETS, SINGLE
     Route: 048
     Dates: start: 202004, end: 202004

REACTIONS (2)
  - Somnolence [Recovered/Resolved]
  - Product name confusion [Recovered/Resolved]

NARRATIVE: CASE EVENT DATE: 202004
